FAERS Safety Report 9542635 (Version 1)
Quarter: 2013Q3

REPORT INFORMATION
  Report Type: Spontaneous
  Country: US (occurrence: US)
  Receive Date: 20130923
  Receipt Date: 20130923
  Transmission Date: 20140515
  Serious: No
  Sender: FDA-Public Use
  Company Number: US-PFIZER INC-2013269974

PATIENT
  Age: 56 Year
  Sex: Female

DRUGS (1)
  1. XELJANZ [Suspect]
     Indication: RHEUMATOID ARTHRITIS
     Dosage: 5 MG, UNK

REACTIONS (5)
  - Abdominal discomfort [Unknown]
  - Abdominal distension [Unknown]
  - Diarrhoea [Unknown]
  - Abdominal pain [Unknown]
  - Weight decreased [Unknown]
